APPROVED DRUG PRODUCT: LABETALOL HYDROCHLORIDE
Active Ingredient: LABETALOL HYDROCHLORIDE
Strength: 100MG
Dosage Form/Route: TABLET;ORAL
Application: A207863 | Product #001 | TE Code: AB
Applicant: HIBROW HEALTHCARE PRIVATE LTD
Approved: Feb 4, 2019 | RLD: No | RS: No | Type: RX